FAERS Safety Report 8513101-3 (Version None)
Quarter: 2012Q3

REPORT INFORMATION
  Report Type: 
  Country: None (occurrence: None)
  Receive Date: 20120716
  Receipt Date: 20120710
  Transmission Date: 20120928
  Serious: Yes (Disabling, Other)
  Sender: FDA-Public Use
  Company Number: US-B.I. PHARMACEUTICALS,INC./RIDGEFIELD-2012-BP-11409BP

PATIENT
  Sex: Male
  Weight: 66.22 kg

DRUGS (6)
  1. TRAZODONE HYDROCHLORIDE [Concomitant]
     Indication: INSOMNIA
     Dates: start: 20110527
  2. PRADAXA [Suspect]
     Indication: ATRIAL FIBRILLATION
     Dosage: 300 MG
     Route: 048
     Dates: start: 20110222, end: 20120403
  3. PRADAXA [Suspect]
     Indication: CEREBROVASCULAR ACCIDENT
  4. KEPPRA [Concomitant]
     Indication: CONVULSION
     Dosage: 3000 MG
     Dates: start: 20120119
  5. CITALOPRAM HYDROBROMIDE [Concomitant]
     Indication: DEPRESSION
     Dosage: 40 MG
     Dates: start: 20110707
  6. ATENOLOL [Concomitant]
     Indication: ATRIAL FIBRILLATION
     Dates: start: 20091210

REACTIONS (4)
  - PAIN IN EXTREMITY [None]
  - OCCULT BLOOD POSITIVE [None]
  - GASTROINTESTINAL HAEMORRHAGE [None]
  - ANAEMIA [None]
